FAERS Safety Report 21918754 (Version 1)
Quarter: 2023Q1

REPORT INFORMATION
  Report Type: Spontaneous
  Country: CN (occurrence: CN)
  Receive Date: 20230127
  Receipt Date: 20230127
  Transmission Date: 20230418
  Serious: Yes (Death, Other)
  Sender: FDA-Public Use
  Company Number: CN-JNJFOC-20230128838

PATIENT

DRUGS (1)
  1. IBRUTINIB [Suspect]
     Active Substance: IBRUTINIB
     Indication: Mantle cell lymphoma
     Route: 048

REACTIONS (38)
  - Torsade de pointes [Fatal]
  - Pericardial haemorrhage [Fatal]
  - Myocardial infarction [Fatal]
  - Arrhythmia [Fatal]
  - Electrocardiogram QT prolonged [Fatal]
  - Ventricular tachyarrhythmia [Fatal]
  - Arrhythmia supraventricular [Unknown]
  - Cardiac failure [Fatal]
  - Supraventricular tachycardia [Unknown]
  - Ventricular fibrillation [Fatal]
  - Cardiac disorder [Unknown]
  - Supraventricular extrasystoles [Unknown]
  - Atrial flutter [Unknown]
  - Palpitations [Unknown]
  - Pericardial effusion [Fatal]
  - Coronary artery occlusion [Fatal]
  - Ventricular dysfunction [Unknown]
  - Cardiac fibrillation [Fatal]
  - Cardiac failure congestive [Fatal]
  - Cardiac valve disease [Unknown]
  - Mitral valve disease [Unknown]
  - Ventricular extrasystoles [Unknown]
  - Atrioventricular block [Unknown]
  - Atrioventricular block second degree [Unknown]
  - Cardiomyopathy [Fatal]
  - Sinus node dysfunction [Fatal]
  - Ventricular arrhythmia [Fatal]
  - Pleuropericarditis [Fatal]
  - Atrial fibrillation [Fatal]
  - Central nervous system haemorrhage [Fatal]
  - Congestive cardiomyopathy [Fatal]
  - Ischaemic cerebral infarction [Fatal]
  - Tachyarrhythmia [Unknown]
  - Cardiac flutter [Fatal]
  - Extrasystoles [Unknown]
  - Ventricular tachycardia [Fatal]
  - Aortic valve disease [Unknown]
  - Cardiac tamponade [Fatal]
